FAERS Safety Report 6129412-5 (Version None)
Quarter: 2009Q1

REPORT INFORMATION
  Report Type: 
  Country: None (occurrence: None)
  Receive Date: 20090323
  Receipt Date: 20090323
  Transmission Date: 20090719
  Serious: No
  Sender: FDA-Public Use
  Company Number: None

PATIENT
  Age: 48 Year
  Sex: Male
  Weight: 66.2252 kg

DRUGS (1)
  1. LEVAQUIN [Suspect]
     Indication: SINUS DISORDER
     Dosage: 750 MG 1 PO
     Route: 048
     Dates: start: 20090316, end: 20090318

REACTIONS (11)
  - ARTHRALGIA [None]
  - CONFUSIONAL STATE [None]
  - DISTURBANCE IN ATTENTION [None]
  - DIZZINESS [None]
  - EUPHORIC MOOD [None]
  - FACIAL PALSY [None]
  - FEELING ABNORMAL [None]
  - INFLUENZA LIKE ILLNESS [None]
  - NERVOUSNESS [None]
  - PAIN [None]
  - TENDON DISORDER [None]
